FAERS Safety Report 8612182 (Version 2)
Quarter: 2014Q1

REPORT INFORMATION
  Report Type: Spontaneous
  Country: US (occurrence: None)
  Receive Date: 20120323
  Receipt Date: 20130305
  Transmission Date: 20141002
  Serious: Yes (Other)
  Sender: FDA-Public Use
  Company Number: 163-21880-11121148

PATIENT
  Age: 82 Year
  Sex: Female

DRUGS (5)
  1. REVLIMID [Suspect]
     Indication: MYELODYSPLASTIC SYNDROME
     Route: 048
     Dates: start: 20110623, end: 201107
  2. ALEVE (NAPROXEN SODIUM) [Concomitant]
  3. PEPCID (FAMOTIDINE) [Concomitant]
  4. ALPRAZOLAM [Concomitant]
  5. TENORETIC [Concomitant]

REACTIONS (1)
  - Renal failure [None]
